FAERS Safety Report 10079344 (Version 1)
Quarter: 2014Q2

REPORT INFORMATION
  Report Type: Spontaneous
  Country: US (occurrence: None)
  Receive Date: 20140414
  Receipt Date: 20140414
  Transmission Date: 20141212
  Serious: No
  Sender: FDA-Public Use
  Company Number: None

PATIENT
  Age: 77 Year
  Sex: Female
  Weight: 65.77 kg

DRUGS (5)
  1. SYMBICORT [Suspect]
     Indication: ASTHMA
     Route: 055
     Dates: start: 201311, end: 201403
  2. ATORVASTATIN [Concomitant]
  3. CENTRUM SILVER [Concomitant]
  4. CALTRATE [Concomitant]
  5. BABY ASPIRIN [Concomitant]

REACTIONS (1)
  - Rhinorrhoea [None]
